FAERS Safety Report 4915176-7 (Version None)
Quarter: 2006Q1

REPORT INFORMATION
  Report Type: 
  Country: None (occurrence: None)
  Receive Date: 20060215
  Receipt Date: 20060215
  Transmission Date: 20060701
  Serious: Yes (Hospitalization, Other)
  Sender: FDA-Public Use
  Company Number: None

PATIENT
  Sex: Male
  Weight: 97.7 kg

DRUGS (7)
  1. IRINOTECAN HCL [Suspect]
     Indication: GLIOBLASTOMA MULTIFORME
     Dosage: 221 MG
     Dates: start: 20060203, end: 20060203
  2. TEMOZOLOMIDE [Suspect]
     Dosage: 1650 MG
     Dates: start: 20060203, end: 20060207
  3. COUMADIN [Concomitant]
  4. DECADRON SRC [Concomitant]
  5. DYAZIDE [Concomitant]
  6. POTASSIUM CHLORIDE [Concomitant]
  7. PREVACID [Concomitant]

REACTIONS (4)
  - CONVULSION [None]
  - FALL [None]
  - INCOHERENT [None]
  - RESPIRATION ABNORMAL [None]
